FAERS Safety Report 8020813-7 (Version None)
Quarter: 2012Q1

REPORT INFORMATION
  Report Type: 
  Country: None (occurrence: None)
  Receive Date: 20120104
  Receipt Date: 20111229
  Transmission Date: 20120608
  Serious: No
  Sender: FDA-Public Use
  Company Number: US-BIOGENIDEC-2011BI049011

PATIENT
  Sex: Female

DRUGS (1)
  1. TYSABRI [Suspect]
     Indication: MULTIPLE SCLEROSIS
     Route: 042
     Dates: start: 20110427

REACTIONS (6)
  - ENDODONTIC PROCEDURE [None]
  - HYPOAESTHESIA [None]
  - COORDINATION ABNORMAL [None]
  - CARPAL TUNNEL SYNDROME [None]
  - PARAESTHESIA [None]
  - DEVICE FAILURE [None]
